FAERS Safety Report 4655342-1 (Version None)
Quarter: 2005Q1

REPORT INFORMATION
  Report Type: 
  Country: None (occurrence: None)
  Receive Date: 20050331
  Receipt Date: 20050118
  Transmission Date: 20050727
  Serious: No
  Sender: FDA-Public Use
  Company Number: UK108576

PATIENT
  Age: 32 Year
  Sex: Female
  Weight: 60 kg

DRUGS (3)
  1. NEULASTA [Suspect]
     Indication: CHEMOTHERAPY
     Dosage: 6 MG,
     Dates: start: 20041214
  2. DOCETAXEL [Concomitant]
  3. DOXYRUBICIN HYDROCHLORIDE [Concomitant]

REACTIONS (1)
  - TACHYCARDIA [None]
